FAERS Safety Report 4391724-3 (Version None)
Quarter: 2004Q3

REPORT INFORMATION
  Report Type: 
  Country: None (occurrence: None)
  Receive Date: 20040701
  Receipt Date: 20040621
  Transmission Date: 20050211
  Serious: Yes (Other)
  Sender: FDA-Public Use
  Company Number: 2004026630

PATIENT
  Age: 62 Year
  Sex: Male
  Weight: 72.5755 kg

DRUGS (6)
  1. LIPITOR [Suspect]
     Indication: BLOOD CHOLESTEROL INCREASED
     Dosage: 1 IN 1 D, ORAL
     Route: 048
     Dates: start: 20011201, end: 20040301
  2. VIAGRA [Suspect]
     Indication: LIBIDO DECREASED
     Dosage: ORAL
     Route: 048
  3. VIAGRA [Suspect]
     Indication: SEXUAL DYSFUNCTION
     Dosage: ORAL
     Route: 048
  4. RABEPRAZOLE SODIUM (RABEPRAZOLE SODIUM) [Concomitant]
  5. LEVOTHYROXINE SODIUM [Concomitant]
  6. ACETYLSALICYLIC ACID SRT [Concomitant]

REACTIONS (6)
  - AMNESIA [None]
  - HEART RATE INCREASED [None]
  - LIBIDO DECREASED [None]
  - MEDICATION ERROR [None]
  - MYOCARDIAL INFARCTION [None]
  - SEXUAL DYSFUNCTION [None]
